FAERS Safety Report 21105101 (Version 5)
Quarter: 2022Q4

REPORT INFORMATION
  Report Type: Report from Study
  Country: FR (occurrence: FR)
  Receive Date: 20220720
  Receipt Date: 20221128
  Transmission Date: 20230113
  Serious: Yes (Life-Threatening)
  Sender: FDA-Public Use
  Company Number: FR-PFIZER INC-PV202200025608

PATIENT
  Age: 35 Year
  Sex: Male
  Weight: 100 kg

DRUGS (10)
  1. MYLOTARG [Suspect]
     Active Substance: GEMTUZUMAB OZOGAMICIN
     Indication: Acute myeloid leukaemia
     Dosage: 5 MG, CYCLIC (DAY1, 4 AND 8)
     Route: 042
     Dates: start: 20210607, end: 20210614
  2. DAUNORUBICIN [Suspect]
     Active Substance: DAUNORUBICIN
     Indication: Acute myeloid leukaemia
     Dosage: UNK
     Route: 042
     Dates: start: 20210607, end: 20210613
  3. CYTARABINE [Concomitant]
     Active Substance: CYTARABINE
     Indication: Acute myeloid leukaemia
     Dosage: UNK
     Route: 042
     Dates: start: 20210607, end: 20210613
  4. PIPERACILLIN SODIUM\TAZOBACTAM SODIUM [Concomitant]
     Active Substance: PIPERACILLIN SODIUM\TAZOBACTAM SODIUM
     Indication: Febrile bone marrow aplasia
     Dosage: UNK
     Dates: start: 20210610
  5. CILASTATIN SODIUM\IMIPENEM [Concomitant]
     Active Substance: CILASTATIN SODIUM\IMIPENEM
     Indication: Pyrexia
     Dosage: UNK
     Dates: start: 20210617
  6. CILASTATIN SODIUM\IMIPENEM [Concomitant]
     Active Substance: CILASTATIN SODIUM\IMIPENEM
     Indication: Gastrointestinal disorder
  7. CILASTATIN SODIUM\IMIPENEM [Concomitant]
     Active Substance: CILASTATIN SODIUM\IMIPENEM
     Indication: Neutropenia
  8. FIDAXOMICIN [Concomitant]
     Active Substance: FIDAXOMICIN
     Indication: Diarrhoea
     Dosage: UNK
     Route: 048
     Dates: start: 20210618, end: 20210622
  9. POSACONAZOLE [Concomitant]
     Active Substance: POSACONAZOLE
     Indication: Malabsorption
     Dosage: UNK
     Dates: start: 20210617
  10. CASPOFUNGIN [Concomitant]
     Active Substance: CASPOFUNGIN
     Indication: Malabsorption
     Dosage: UNK
     Route: 042
     Dates: start: 20210617

REACTIONS (1)
  - Renal failure [Not Recovered/Not Resolved]

NARRATIVE: CASE EVENT DATE: 20210619
